FAERS Safety Report 10891138 (Version 2)
Quarter: 2015Q2

REPORT INFORMATION
  Report Type: Report from Study
  Country: US (occurrence: US)
  Receive Date: 20150305
  Receipt Date: 20150414
  Transmission Date: 20150821
  Serious: Yes (Other)
  Sender: FDA-Public Use
  Company Number: US-SA-2015SA026227

PATIENT
  Age: 62 Year
  Sex: Female

DRUGS (3)
  1. LANTUS [Suspect]
     Active Substance: INSULIN GLARGINE
     Indication: TYPE 2 DIABETES MELLITUS
     Dosage: 40-50 UNITS AM AND 40-50 UNITS PM,
     Route: 065
  2. NOVOLOG [Concomitant]
     Active Substance: INSULIN ASPART
  3. LANTUS [Suspect]
     Active Substance: INSULIN GLARGINE
     Indication: TYPE 2 DIABETES MELLITUS
     Dosage: DOSE:6 UNIT(S)
     Route: 065

REACTIONS (4)
  - Heart valve replacement [Unknown]
  - Drug administration error [Unknown]
  - Cardiac pacemaker insertion [Unknown]
  - Weight decreased [Unknown]

NARRATIVE: CASE EVENT DATE: 201212
